FAERS Safety Report 15328322 (Version 8)
Quarter: 2019Q4

REPORT INFORMATION
  Report Type: Spontaneous
  Country: US (occurrence: US)
  Receive Date: 20180829
  Receipt Date: 20191025
  Transmission Date: 20200122
  Serious: Yes (Hospitalization, Other)
  Sender: FDA-Public Use
  Company Number: US-COLGATE PALMOLIVE COMPANY-20180801963

PATIENT

DRUGS (19)
  1. ASPIRIN                            /00002701/ [Concomitant]
     Active Substance: ASPIRIN
     Dosage: UNK
  2. SPIRONOLACTONE. [Concomitant]
     Active Substance: SPIRONOLACTONE
     Dosage: UNK
  3. KEFLEX [Concomitant]
     Active Substance: CEPHALEXIN
     Dosage: UNK
  4. LINEZOLID. [Concomitant]
     Active Substance: LINEZOLID
     Dosage: UNK
  5. VELETRI [Suspect]
     Active Substance: EPOPROSTENOL
     Dosage: 37 NG/KG, PER MIN
     Route: 042
  6. CHLORHEXIDINE GLUCONATE UNSPECIFIED [Suspect]
     Active Substance: CHLORHEXIDINE GLUCONATE
     Indication: PRODUCT USED FOR UNKNOWN INDICATION
     Dosage: UNK
     Route: 065
  7. VELETRI [Suspect]
     Active Substance: EPOPROSTENOL
     Dosage: 32 NG/KG, 1 PER MIN
     Route: 042
     Dates: start: 20190308
  8. ADCIRCA [Suspect]
     Active Substance: TADALAFIL
     Indication: PULMONARY HYPERTENSION
     Dosage: 20 MG, BID
     Route: 065
     Dates: start: 20180224
  9. VELETRI [Suspect]
     Active Substance: EPOPROSTENOL
     Indication: PULMONARY ARTERIAL HYPERTENSION
     Dosage: 12 NG/KG, 1 PER MIN
     Route: 042
     Dates: start: 20180201
  10. UPTRAVI [Concomitant]
     Active Substance: SELEXIPAG
     Indication: PRODUCT USED FOR UNKNOWN INDICATION
     Dosage: 1200 MCG, BID
     Route: 048
  11. LETAIRIS [Suspect]
     Active Substance: AMBRISENTAN
     Indication: PULMONARY ARTERIAL HYPERTENSION
     Dosage: 10 MILLIGRAM, QD
     Route: 048
     Dates: start: 20140722
  12. VELETRI [Suspect]
     Active Substance: EPOPROSTENOL
     Dosage: 14 MG/KG,1 PER MINUTE
     Route: 042
     Dates: start: 20170810
  13. LASIX [Concomitant]
     Active Substance: FUROSEMIDE
     Dosage: UNK
  14. PANTOPRAZOLE [Concomitant]
     Active Substance: PANTOPRAZOLE
     Dosage: UNK
  15. ADCIRCA [Suspect]
     Active Substance: TADALAFIL
     Dosage: 40 MG, QD
     Route: 065
     Dates: start: 20170811
  16. VELETRI [Suspect]
     Active Substance: EPOPROSTENOL
     Dosage: 30 NG/KG, PER MIN
     Route: 042
     Dates: start: 20180131
  17. VELETRI [Suspect]
     Active Substance: EPOPROSTENOL
     Dosage: 11 NG/KG, 1 PER MIN
     Route: 042
     Dates: start: 20180201
  18. VELETRI [Suspect]
     Active Substance: EPOPROSTENOL
     Dosage: 17 NG/KG, 1 PER MIN
     Route: 042
  19. BACTRIM [Concomitant]
     Active Substance: SULFAMETHOXAZOLE\TRIMETHOPRIM
     Dosage: UNK

REACTIONS (39)
  - Pain in jaw [Recovered/Resolved]
  - Catheter site erythema [Recovered/Resolved]
  - Wound [Unknown]
  - Chills [Unknown]
  - Fluid overload [Unknown]
  - Hospitalisation [Unknown]
  - Fatigue [Unknown]
  - Ascites [Unknown]
  - Wound infection [Unknown]
  - Catheter site irritation [Unknown]
  - Disease progression [Unknown]
  - Dyspnoea [Unknown]
  - Sepsis [Recovered/Resolved]
  - Drug ineffective [Not Recovered/Not Resolved]
  - Flushing [Recovered/Resolved]
  - Hypersensitivity [Unknown]
  - Pyrexia [Unknown]
  - Unevaluable event [Unknown]
  - Pulmonary hypertension [Unknown]
  - Headache [Unknown]
  - Rash [Unknown]
  - Device related infection [Recovered/Resolved]
  - Infection [Unknown]
  - Catheter site rash [Unknown]
  - Joint swelling [Not Recovered/Not Resolved]
  - Catheter management [Unknown]
  - Pain in extremity [Recovered/Resolved]
  - Shock [Unknown]
  - Peripheral swelling [Not Recovered/Not Resolved]
  - Bacteraemia [Unknown]
  - Haemoglobin decreased [Unknown]
  - Platelet count decreased [Unknown]
  - Application site irritation [Unknown]
  - Catheter site infection [Unknown]
  - Abdominal pain upper [Unknown]
  - Cellulitis [Recovered/Resolved]
  - Oedema [Unknown]
  - Chest pain [Unknown]
  - Pulmonary arterial hypertension [Unknown]

NARRATIVE: CASE EVENT DATE: 20180215
